FAERS Safety Report 5488760-2 (Version None)
Quarter: 2007Q4

REPORT INFORMATION
  Report Type: 
  Country: None (occurrence: None)
  Receive Date: 20071017
  Receipt Date: 20071005
  Transmission Date: 20080405
  Serious: Yes (Hospitalization)
  Sender: FDA-Public Use
  Company Number: CH-PFIZER INC-2007083794

PATIENT
  Age: 79 Year
  Sex: Male

DRUGS (35)
  1. NEURONTIN [Suspect]
     Indication: DIABETIC NEUROPATHY
     Route: 048
     Dates: start: 20051220, end: 20070710
  2. SINTROM [Concomitant]
     Route: 048
  3. CORVATON ^BELUPO^ [Concomitant]
     Route: 048
  4. ALL OTHER THERAPEUTIC PRODUCTS [Concomitant]
     Route: 048
  5. ALL OTHER THERAPEUTIC PRODUCTS [Concomitant]
     Route: 048
  6. SIMVASTATIN [Concomitant]
     Route: 048
  7. SIMVASTATIN [Concomitant]
     Route: 048
  8. CONCOR [Concomitant]
     Route: 048
  9. CONCOR [Concomitant]
     Route: 048
  10. LASIX [Concomitant]
     Route: 048
  11. LASIX [Concomitant]
     Route: 048
  12. ASPIRIN [Concomitant]
     Route: 048
  13. ASPIRIN [Concomitant]
     Route: 048
  14. GLUCOPHAGE [Concomitant]
     Route: 048
  15. GLUCOPHAGE [Concomitant]
     Route: 048
  16. RIVOTRIL [Concomitant]
     Route: 048
  17. RIVOTRIL [Concomitant]
     Route: 048
  18. BECOSYM [Concomitant]
     Route: 048
  19. BECOSYM [Concomitant]
     Route: 048
  20. BENERVA [Concomitant]
     Route: 048
  21. BENERVA [Concomitant]
     Route: 048
  22. NEXIUM [Concomitant]
     Route: 048
  23. NEXIUM [Concomitant]
     Route: 048
  24. TARDYFERON [Concomitant]
     Route: 048
  25. TARDYFERON [Concomitant]
     Route: 048
  26. SERETIDE [Concomitant]
     Route: 002
  27. SERETIDE [Concomitant]
     Route: 002
  28. DOSPIR [Concomitant]
     Route: 002
  29. DOSPIR [Concomitant]
     Route: 002
  30. PRADIF [Concomitant]
     Route: 048
  31. PRADIF [Concomitant]
     Route: 048
  32. OXYGEN [Concomitant]
  33. CARVEDILOL [Concomitant]
  34. FUROSEMIDE [Concomitant]
     Route: 048
  35. SPIRONOLACTONE [Concomitant]
     Route: 048

REACTIONS (1)
  - CARDIAC FAILURE [None]
